FAERS Safety Report 18522234 (Version 1)
Quarter: 2020Q4

REPORT INFORMATION
  Report Type: Report from Study
  Country: NL (occurrence: NL)
  Receive Date: 20201119
  Receipt Date: 20201119
  Transmission Date: 20210114
  Serious: Yes (Other)
  Sender: FDA-Public Use
  Company Number: NL-ROCHE-2713765

PATIENT
  Age: 34 Year

DRUGS (4)
  1. COBIMETINIB. [Suspect]
     Active Substance: COBIMETINIB
     Indication: NEOPLASM
     Dosage: 1D 60 MG
     Route: 048
     Dates: start: 20201028, end: 20201106
  2. PREDNISOLONE. [Concomitant]
     Active Substance: PREDNISOLONE
  3. VEMURAFENIB. [Suspect]
     Active Substance: VEMURAFENIB
     Indication: NEOPLASM
     Dosage: 2D 960 MG
     Route: 048
     Dates: start: 20201028, end: 20201106
  4. DESMOPRESSIN [Concomitant]
     Active Substance: DESMOPRESSIN
     Dosage: 1D 0,05MG
     Dates: start: 20200922

REACTIONS (3)
  - Rash maculo-papular [Recovering/Resolving]
  - Renal failure [Recovering/Resolving]
  - Thrombocytopenia [Not Recovered/Not Resolved]

NARRATIVE: CASE EVENT DATE: 20201107
